FAERS Safety Report 8060584-1 (Version None)
Quarter: 2012Q1

REPORT INFORMATION
  Report Type: 
  Country: None (occurrence: None)
  Receive Date: 20120120
  Receipt Date: 20120117
  Transmission Date: 20120608
  Serious: Yes (Other)
  Sender: FDA-Public Use
  Company Number: US-BAYER-2012-006150

PATIENT
  Age: 62 Year
  Sex: Female
  Weight: 77.098 kg

DRUGS (1)
  1. NAPROXEN (ALEVE) [Suspect]
     Indication: TEMPOROMANDIBULAR JOINT SYNDROME
     Dosage: 220 MG, BID, BOTTLE COUNT 20S
     Route: 048
     Dates: start: 20120106, end: 20120113

REACTIONS (4)
  - URTICARIA [None]
  - RASH PRURITIC [None]
  - HYPERSENSITIVITY [None]
  - OEDEMA PERIPHERAL [None]
